FAERS Safety Report 8764186 (Version 2)
Quarter: 2013Q1

REPORT INFORMATION
  Report Type: Report from Study
  Country: JP (occurrence: JP)
  Receive Date: 20120831
  Receipt Date: 20130219
  Transmission Date: 20140127
  Serious: Yes (Hospitalization)
  Sender: FDA-Public Use
  Company Number: JP-009507513-1208JPN009271

PATIENT
  Age: 61 Year
  Sex: Female
  Weight: 56 kg

DRUGS (7)
  1. PEGINTRON [Suspect]
     Indication: CHRONIC HEPATITIS C
     Dosage: 1.0MCG/KG/WWK
     Route: 058
     Dates: start: 20120502, end: 20120625
  2. REBETOL [Suspect]
     Indication: CHRONIC HEPATITIS C
     Dosage: 200 MG, QD
     Route: 048
     Dates: start: 20120502, end: 20120627
  3. TELAVIC [Suspect]
     Indication: HEPATITIS C
     Dosage: 1000 MG, QD
     Route: 048
     Dates: start: 20120502, end: 20120627
  4. THYRADIN [Concomitant]
     Route: 048
  5. DIOVAN [Concomitant]
     Route: 048
  6. PARIET [Concomitant]
     Dosage: 10 MG, QD
     Route: 048
  7. ZYLORIC [Concomitant]
     Route: 048

REACTIONS (1)
  - Dizziness [Recovered/Resolved]
